FAERS Safety Report 22066304 (Version 1)
Quarter: 2023Q1

REPORT INFORMATION
  Report Type: Spontaneous
  Country: US (occurrence: None)
  Receive Date: 20230306
  Receipt Date: 20230306
  Transmission Date: 20230417
  Serious: Yes (Other)
  Sender: FDA-Public Use
  Company Number: None

PATIENT
  Age: 79 Year
  Sex: Male
  Weight: 58.5 kg

DRUGS (2)
  1. KETOROLAC TROMETHAMINE [Suspect]
     Active Substance: KETOROLAC TROMETHAMINE
     Indication: Cataract operation
     Dosage: FREQUENCY : TWICE A DAY;?
     Dates: start: 20230104, end: 20230306
  2. Timolol Maelate OP .5% SOL [Concomitant]

REACTIONS (2)
  - Gait inability [None]
  - Asthenia [None]

NARRATIVE: CASE EVENT DATE: 20230306
